FAERS Safety Report 6060265-X (Version None)
Quarter: 2009Q1

REPORT INFORMATION
  Report Type: 
  Country: None (occurrence: None)
  Receive Date: 20090129
  Receipt Date: 20090123
  Transmission Date: 20090719
  Serious: Yes (Hospitalization)
  Sender: FDA-Public Use
  Company Number: 2009GR_BP0119

PATIENT
  Age: 39 Year
  Sex: Male

DRUGS (1)
  1. TERBINAFINE HCL [Suspect]
     Indication: ONYCHOMYCOSIS
     Dosage: 250 MG (250 MG,1 IN 1 D) ORAL
     Route: 048

REACTIONS (4)
  - ARTERIOSPASM CORONARY [None]
  - HOT FLUSH [None]
  - MYOCARDIAL INFARCTION [None]
  - PARAESTHESIA [None]
